FAERS Safety Report 19129925 (Version 1)
Quarter: 2021Q2

REPORT INFORMATION
  Report Type: Spontaneous
  Country: BR (occurrence: BR)
  Receive Date: 20210413
  Receipt Date: 20210413
  Transmission Date: 20210717
  Serious: Yes (Other)
  Sender: FDA-Public Use
  Company Number: BR-ASTRAZENECA-2021A256140

PATIENT
  Sex: Female

DRUGS (4)
  1. GLIFAGE [Concomitant]
     Active Substance: METFORMIN HYDROCHLORIDE
  2. ROACUTAN [Concomitant]
     Active Substance: ISOTRETINOIN
  3. FORXIGA [Suspect]
     Active Substance: DAPAGLIFLOZIN
     Dosage: 10.0MG UNKNOWN
     Route: 048
  4. ROSUVASTATIN. [Suspect]
     Active Substance: ROSUVASTATIN
     Route: 048

REACTIONS (1)
  - Gastrointestinal cancer metastatic [Not Recovered/Not Resolved]
